FAERS Safety Report 6918627-1 (Version None)
Quarter: 2010Q3

REPORT INFORMATION
  Report Type: 
  Country: None (occurrence: None)
  Receive Date: 20100811
  Receipt Date: 20100730
  Transmission Date: 20110219
  Serious: Yes (Other)
  Sender: FDA-Public Use
  Company Number: CO-PFIZER INC-2010082591

PATIENT
  Age: 12 Year
  Sex: Female

DRUGS (2)
  1. SOMATROPIN [Suspect]
     Indication: TURNER'S SYNDROME
     Dosage: 1.6 MG, 1X/DAY
     Route: 058
     Dates: start: 20060501
  2. SOMATROPIN [Suspect]
     Dosage: 2.0 MG, 1X/DAY
     Route: 058
     Dates: end: 20080301

REACTIONS (1)
  - OSTEONECROSIS [None]
